FAERS Safety Report 18351628 (Version 2)
Quarter: 2021Q1

REPORT INFORMATION
  Report Type: Spontaneous
  Country: US (occurrence: US)
  Receive Date: 20201006
  Receipt Date: 20210108
  Transmission Date: 20210419
  Serious: Yes (Other)
  Sender: FDA-Public Use
  Company Number: US-AMNEAL PHARMACEUTICALS-2020-AMRX-02637

PATIENT
  Sex: Male
  Weight: 9 kg

DRUGS (6)
  1. VIGABATRIN. [Suspect]
     Active Substance: VIGABATRIN
     Dosage: 1000 MILLIGRAM, (5ML) BID
     Route: 048
     Dates: start: 2020
  2. VIGABATRIN. [Suspect]
     Active Substance: VIGABATRIN
     Dosage: 18 MILLILITER, 2X/DAY
     Route: 048
     Dates: start: 20200915, end: 2020
  3. ACTHAR [Suspect]
     Active Substance: CORTICOTROPIN
     Indication: PRODUCT USED FOR UNKNOWN INDICATION
     Dosage: UNK
     Route: 065
  4. VIGABATRIN. [Suspect]
     Active Substance: VIGABATRIN
     Indication: INFANTILE SPASMS
     Dosage: 250 MILLIGRAM, (5ML) BID
     Route: 048
     Dates: start: 202007, end: 2020
  5. VIGABATRIN. [Suspect]
     Active Substance: VIGABATRIN
     Dosage: 8 MILLILITER, 2X/DAY
     Route: 048
     Dates: start: 2020, end: 2020
  6. PREVACID [Concomitant]
     Active Substance: LANSOPRAZOLE
     Indication: PRODUCT USED FOR UNKNOWN INDICATION
     Dosage: 15 MILLIGRAM
     Route: 065

REACTIONS (2)
  - Seizure [Not Recovered/Not Resolved]
  - Therapeutic product effect incomplete [Unknown]

NARRATIVE: CASE EVENT DATE: 2020
